FAERS Safety Report 8257321-4 (Version None)
Quarter: 2012Q1

REPORT INFORMATION
  Report Type: 
  Country: None (occurrence: None)
  Receive Date: 20120330
  Receipt Date: 20120319
  Transmission Date: 20120608
  Serious: Yes (Other)
  Sender: FDA-Public Use
  Company Number: IMP_05785_2012

PATIENT
  Age: 22 Year
  Sex: Female

DRUGS (1)
  1. CABERGOLINE [Suspect]
     Indication: PRODUCT USED FOR UNKNOWN INDICATION
     Dosage: (0.5 MG 1X ORAL)
     Route: 048

REACTIONS (1)
  - ANGLE CLOSURE GLAUCOMA [None]
